FAERS Safety Report 8110900-7 (Version None)
Quarter: 2012Q1

REPORT INFORMATION
  Report Type: 
  Country: None (occurrence: None)
  Receive Date: 20120203
  Receipt Date: 20120131
  Transmission Date: 20120608
  Serious: Yes (Hospitalization)
  Sender: FDA-Public Use
  Company Number: JP-JNJFOC-20120200991

PATIENT
  Age: 87 Year
  Sex: Male

DRUGS (3)
  1. MICONAZOLE [Suspect]
     Indication: PRODUCT USED FOR UNKNOWN INDICATION
     Dosage: 5 G 3 TIMES A DAY
     Route: 049
     Dates: start: 20111201
  2. WARFARIN SODIUM [Interacting]
     Indication: PRODUCT USED FOR UNKNOWN INDICATION
     Route: 048
  3. MICONAZOLE [Suspect]
     Route: 049

REACTIONS (4)
  - DRUG INTERACTION [None]
  - EPISTAXIS [None]
  - HAEMORRHAGE SUBCUTANEOUS [None]
  - INTERNATIONAL NORMALISED RATIO INCREASED [None]
